FAERS Safety Report 20085777 (Version 1)
Quarter: 2021Q4

REPORT INFORMATION
  Report Type: Spontaneous
  Country: US (occurrence: None)
  Receive Date: 20211117
  Receipt Date: 20211117
  Transmission Date: 20220303
  Serious: No
  Sender: FDA-Public Use
  Company Number: None

PATIENT
  Age: 46 Year
  Sex: Female

DRUGS (1)
  1. CASIRIVIMAB\IMDEVIMAB [Suspect]
     Active Substance: CASIRIVIMAB\IMDEVIMAB
     Indication: COVID-19 treatment

REACTIONS (9)
  - Infusion related reaction [None]
  - Chest discomfort [None]
  - Chest pain [None]
  - Muscle spasms [None]
  - Dyspnoea [None]
  - Cold sweat [None]
  - Dizziness [None]
  - Hyperhidrosis [None]
  - Hypertension [None]

NARRATIVE: CASE EVENT DATE: 20211117
